FAERS Safety Report 6976901-7 (Version None)
Quarter: 2010Q3

REPORT INFORMATION
  Report Type: 
  Country: None (occurrence: None)
  Receive Date: 20100910
  Receipt Date: 20100901
  Transmission Date: 20110219
  Serious: Yes (Other)
  Sender: FDA-Public Use
  Company Number: US-PFIZER INC-2010106826

PATIENT
  Sex: Female
  Weight: 85.261 kg

DRUGS (6)
  1. CHANTIX [Suspect]
     Indication: SMOKING CESSATION THERAPY
     Dosage: 1 MG, 2X/DAY
     Route: 048
     Dates: start: 20090101
  2. RISPERIDONE [Suspect]
     Indication: INSOMNIA
     Dosage: 2 MG, 1X/DAY
     Route: 048
  3. RISPERIDONE [Suspect]
     Indication: THINKING ABNORMAL
  4. URSODIOL [Suspect]
     Indication: PROPHYLAXIS
     Dosage: 300 MG, 2X/DAY
     Route: 048
  5. LAMOTRIGINE [Concomitant]
     Indication: BIPOLAR DISORDER
     Dosage: 200 MG, 1X/DAY
     Route: 048
  6. DIAZEPAM [Concomitant]
     Indication: ANXIETY
     Dosage: 5 MG, AS NEEDED
     Route: 048

REACTIONS (3)
  - HEPATIC ENZYME INCREASED [None]
  - SURGERY [None]
  - WITHDRAWAL SYNDROME [None]
